FAERS Safety Report 10232599 (Version 1)
Quarter: 2014Q2

REPORT INFORMATION
  Report Type: Spontaneous
  Country: US (occurrence: None)
  Receive Date: 20140611
  Receipt Date: 20140611
  Transmission Date: 20141212
  Serious: Yes (Other)
  Sender: FDA-Public Use
  Company Number: None

PATIENT
  Age: 52 Year
  Sex: Female
  Weight: 86.18 kg

DRUGS (1)
  1. MICONAZOLE NITRATE [Suspect]
     Indication: FUNGAL INFECTION
     Dosage: ONE DAILY, ONCE DAILY, VAGINAL
     Route: 067
     Dates: start: 20140602, end: 20140603

REACTIONS (5)
  - Swelling [None]
  - Erythema [None]
  - Pain [None]
  - Pruritus [None]
  - Burning sensation [None]
